FAERS Safety Report 5591333-4 (Version None)
Quarter: 2008Q1

REPORT INFORMATION
  Report Type: 
  Country: None (occurrence: None)
  Receive Date: 20080110
  Receipt Date: 20080110
  Transmission Date: 20080703
  Serious: No
  Sender: FDA-Public Use
  Company Number: None

PATIENT
  Age: 44 Year
  Sex: Male

DRUGS (1)
  1. LOVASTATIN [Suspect]
     Dates: start: 20050601

REACTIONS (1)
  - AMYOTROPHIC LATERAL SCLEROSIS [None]
